FAERS Safety Report 7939249-X (Version None)
Quarter: 2011Q4

REPORT INFORMATION
  Report Type: 
  Country: None (occurrence: None)
  Receive Date: 20111124
  Receipt Date: 20111116
  Transmission Date: 20120403
  Serious: Yes (Other)
  Sender: FDA-Public Use
  Company Number: US-JNJFOC-20110904697

PATIENT
  Sex: Female

DRUGS (2)
  1. REMICADE [Suspect]
     Indication: COLITIS ULCERATIVE
     Dosage: PATIENT WAS ON REMICADE APPROXIMATELY MORE THAN 8 MONTHS
     Route: 042
  2. REMICADE [Suspect]
     Indication: CROHN'S DISEASE
     Dosage: PATIENT WAS ON REMICADE APPROXIMATELY MORE THAN 8 MONTHS
     Route: 042

REACTIONS (4)
  - MUSCULAR WEAKNESS [None]
  - EYELID PTOSIS [None]
  - PARAESTHESIA [None]
  - HYPOAESTHESIA [None]
